FAERS Safety Report 4844664-7 (Version None)
Quarter: 2005Q4

REPORT INFORMATION
  Report Type: 
  Country: None (occurrence: None)
  Receive Date: 20051205
  Receipt Date: 20051123
  Transmission Date: 20060501
  Serious: Yes (Other)
  Sender: FDA-Public Use
  Company Number: IT-BOEHRINGER INGELHEIM PHARMACEUTICALS, INC.-2005-DE-05141GD

PATIENT
  Age: 4 Week
  Sex: Male
  Weight: 2.8 kg

DRUGS (5)
  1. CLONIDINE [Suspect]
     Indication: PERIOPERATIVE ANALGESIA
     Dosage: 1 MCG/KG
     Route: 008
  2. ROPIVACAINE [Suspect]
     Indication: PERIOPERATIVE ANALGESIA
     Dosage: 1 ML/KG OF 0.2 %
     Route: 008
  3. SEVOFLURANE [Concomitant]
     Dosage: TO A MAXIMUM OF 2 %
     Route: 055
  4. AIR/OXYGEN [Concomitant]
     Dosage: AIR/OXYGEN (50 % / 50 %) VIA FACEMASK
     Route: 055
  5. DEXTROSE [Concomitant]
     Dosage: 5 % IN 0.45 NACL INFUSED AT A RATE OF 4 ML/KG/H
     Route: 042

REACTIONS (2)
  - APNOEA [None]
  - BRADYCARDIA [None]
